FAERS Safety Report 7464349-0 (Version None)
Quarter: 2011Q2

REPORT INFORMATION
  Report Type: 
  Country: None (occurrence: None)
  Receive Date: 20110509
  Receipt Date: 20110331
  Transmission Date: 20111010
  Serious: Yes (Other)
  Sender: FDA-Public Use
  Company Number: JP-BAYER-2011-026375

PATIENT
  Age: 63 Year
  Sex: Female
  Weight: 48.073 kg

DRUGS (4)
  1. NEXAVAR [Suspect]
     Dosage: 200 MG, BID
     Route: 048
     Dates: start: 20110305
  2. NEXAVAR [Suspect]
     Indication: HEPATIC NEOPLASM MALIGNANT
     Dosage: 200 MG, TID
     Route: 048
     Dates: start: 20110107, end: 20110126
  3. NEXAVAR [Suspect]
     Dosage: 200 MG, TID
     Route: 048
     Dates: start: 20110317
  4. AMLODIPINE [Concomitant]
     Dosage: DAILY DOSE 5 MG
     Route: 048

REACTIONS (1)
  - SKIN NECROSIS [None]
